FAERS Safety Report 11634514 (Version 4)
Quarter: 2016Q2

REPORT INFORMATION
  Report Type: Report from Study
  Country: CN (occurrence: CN)
  Receive Date: 20151015
  Receipt Date: 20160607
  Transmission Date: 20160815
  Serious: Yes (Other)
  Sender: FDA-Public Use
  Company Number: CN-UCBSA-2015003925

PATIENT
  Age: 62 Year
  Sex: Female
  Weight: 44 kg

DRUGS (3)
  1. MTX [Concomitant]
     Active Substance: METHOTREXATE SODIUM
     Indication: RHEUMATOID ARTHRITIS
     Dosage: 10 MG, WEEKLY (QW)
     Dates: start: 1988
  2. CERTOLIZUMAB PEGOL RA [Suspect]
     Active Substance: CERTOLIZUMAB PEGOL
     Indication: RHEUMATOID ARTHRITIS
     Dosage: 400 MG, EV 2 WEEKS(QOW), 3 DOSES RECEIVED
     Route: 058
     Dates: start: 20141014, end: 20141113
  3. CERTOLIZUMAB PEGOL RA [Suspect]
     Active Substance: CERTOLIZUMAB PEGOL
     Dosage: 200 MG, EV 2 WEEKS(QOW), 6 DOSES RECEIVED
     Route: 058
     Dates: start: 20141127, end: 20150122

REACTIONS (2)
  - Latent tuberculosis [Recovered/Resolved]
  - Tuberculosis gastrointestinal [Recovered/Resolved]

NARRATIVE: CASE EVENT DATE: 20150122
